FAERS Safety Report 20742250 (Version 1)
Quarter: 2022Q2

REPORT INFORMATION
  Report Type: Spontaneous
  Country: UZ (occurrence: UZ)
  Receive Date: 20220423
  Receipt Date: 20220423
  Transmission Date: 20220720
  Serious: Yes (Other)
  Sender: FDA-Public Use
  Company Number: UZ-JNJFOC-20220425577

PATIENT
  Age: 78 Year
  Sex: Male
  Weight: 62 kg

DRUGS (12)
  1. SIRTURO [Suspect]
     Active Substance: BEDAQUILINE FUMARATE
     Indication: Tuberculosis
     Route: 048
     Dates: start: 20201202
  2. LINEZOLID [Suspect]
     Active Substance: LINEZOLID
     Indication: Tuberculosis
     Dosage: 300 UNITS NOT REPORTED
     Route: 048
     Dates: start: 20201202, end: 20210723
  3. LINEZOLID [Suspect]
     Active Substance: LINEZOLID
     Dosage: 300 UNITS NOT REPORTED
     Route: 048
     Dates: start: 20210724
  4. LEVOFLOXACIN [Suspect]
     Active Substance: LEVOFLOXACIN
     Indication: Tuberculosis
     Dosage: 750 UNITS NOT REPORTED
     Route: 048
     Dates: start: 20201202, end: 20210715
  5. LEVOFLOXACIN [Suspect]
     Active Substance: LEVOFLOXACIN
     Dosage: 750 UNITS NOT REPORTED
     Route: 048
     Dates: end: 20210727
  6. CYCLOSERINE [Suspect]
     Active Substance: CYCLOSERINE
     Indication: Tuberculosis
     Dosage: 500 UNITS NOT REPORTED
     Route: 048
     Dates: start: 20201202, end: 20220317
  7. CYCLOSERINE [Suspect]
     Active Substance: CYCLOSERINE
     Dosage: 500 UNITS NOT REPORTED
     Route: 048
     Dates: end: 20220126
  8. CYCLOSERINE [Suspect]
     Active Substance: CYCLOSERINE
     Route: 048
     Dates: end: 20220317
  9. CLOFAZIMINE [Suspect]
     Active Substance: CLOFAZIMINE
     Indication: Tuberculosis
     Route: 048
     Dates: start: 20201202
  10. MOXIFLOXACIN [Suspect]
     Active Substance: MOXIFLOXACIN
     Indication: Tuberculosis
     Dosage: 1.0
     Route: 048
     Dates: start: 20201130
  11. MOXIFLOXACIN [Suspect]
     Active Substance: MOXIFLOXACIN
     Dosage: 0.25
     Route: 048
     Dates: start: 20201130
  12. DICLOFENAC [Concomitant]
     Active Substance: DICLOFENAC
     Dosage: 3.0

REACTIONS (13)
  - Cataract [Recovering/Resolving]
  - Arthralgia [Recovering/Resolving]
  - Hypoacusis [Unknown]
  - Urine output decreased [Unknown]
  - Pollakiuria [Unknown]
  - Platelet count decreased [Unknown]
  - Nervous system disorder [Recovering/Resolving]
  - Headache [Unknown]
  - Amnesia [Unknown]
  - Dizziness [Not Recovered/Not Resolved]
  - Asthenia [Unknown]
  - Tremor [Unknown]
  - Coordination abnormal [Unknown]

NARRATIVE: CASE EVENT DATE: 20210501
